FAERS Safety Report 10182192 (Version 2)
Quarter: 2014Q2

REPORT INFORMATION
  Report Type: Report from Study
  Country: US (occurrence: US)
  Receive Date: 20140520
  Receipt Date: 20140603
  Transmission Date: 20141212
  Serious: Yes (Hospitalization)
  Sender: FDA-Public Use
  Company Number: US-BIOGENIDEC-2014BI044150

PATIENT
  Age: 56 Year
  Sex: Male

DRUGS (5)
  1. TYSABRI [Suspect]
     Indication: MULTIPLE SCLEROSIS
     Route: 042
     Dates: start: 20100312, end: 20131219
  2. AMPYRA [Concomitant]
     Indication: GAIT DISTURBANCE
     Route: 048
     Dates: start: 20120221, end: 201312
  3. PROVIGIL [Concomitant]
     Indication: FATIGUE
     Route: 048
  4. NEURONTIN [Concomitant]
     Indication: PAIN
     Route: 048
  5. FLEXERIL [Concomitant]
     Indication: MUSCULOSKELETAL STIFFNESS
     Route: 048

REACTIONS (5)
  - Multi-organ failure [Unknown]
  - Influenza [Recovered/Resolved]
  - Pneumonia [Recovered/Resolved]
  - Nephrolithiasis [Recovered/Resolved]
  - Urinary tract infection [Recovered/Resolved]
